FAERS Safety Report 6568602-4 (Version None)
Quarter: 2010Q1

REPORT INFORMATION
  Report Type: 
  Country: None (occurrence: None)
  Receive Date: 20100203
  Receipt Date: 20100128
  Transmission Date: 20100710
  Serious: Yes (Hospitalization)
  Sender: FDA-Public Use
  Company Number: FR-MERCK-1002FRA00001

PATIENT
  Age: 45 Year
  Sex: Male

DRUGS (6)
  1. ISENTRESS [Suspect]
     Indication: HIV INFECTION
     Route: 048
     Dates: start: 20100101, end: 20100128
  2. EMTRICITABINE AND TENOFOVIR DISOPROXIL FUMARATE [Concomitant]
     Indication: HIV INFECTION
     Route: 048
     Dates: start: 20090401, end: 20100128
  3. ETRAVIRINE [Concomitant]
     Indication: HIV INFECTION
     Route: 048
     Dates: start: 20100101, end: 20100128
  4. METHOTREXATE [Concomitant]
     Indication: BURKITT'S LYMPHOMA
     Route: 065
  5. CYCLOPHOSPHAMIDE [Concomitant]
     Indication: BURKITT'S LYMPHOMA
     Route: 065
  6. VINCRISTINE SULFATE [Concomitant]
     Indication: BURKITT'S LYMPHOMA
     Route: 065

REACTIONS (2)
  - RENAL FAILURE ACUTE [None]
  - RENAL TUBULAR NECROSIS [None]
